FAERS Safety Report 8230778-0 (Version None)
Quarter: 2012Q1

REPORT INFORMATION
  Report Type: 
  Country: None (occurrence: None)
  Receive Date: 20120322
  Receipt Date: 20120322
  Transmission Date: 20120608
  Serious: Yes (Death, Hospitalization)
  Sender: FDA-Public Use
  Company Number: None

PATIENT
  Sex: Male
  Weight: 93.1 kg

DRUGS (2)
  1. CYTARABINE [Suspect]
     Dosage: 8000 MG
     Dates: end: 20120306
  2. CLOLAR [Suspect]
     Dosage: 240 MG
     Dates: end: 20120302

REACTIONS (4)
  - HYPOXIA [None]
  - CARDIAC ARREST [None]
  - ACUTE LYMPHOCYTIC LEUKAEMIA RECURRENT [None]
  - INFLUENZA [None]
